FAERS Safety Report 8268871-9 (Version None)
Quarter: 2012Q2

REPORT INFORMATION
  Report Type: 
  Country: None (occurrence: None)
  Receive Date: 20120409
  Receipt Date: 20120327
  Transmission Date: 20120825
  Serious: Yes (Other)
  Sender: FDA-Public Use
  Company Number: GB-TEVA-331042ISR

PATIENT
  Age: 19 Year
  Sex: Female
  Weight: 60 kg

DRUGS (3)
  1. BECLOMETHASONE DIPROPIONATE [Concomitant]
     Indication: ASTHMA
     Dosage: 400 MILLIGRAM;
     Route: 055
     Dates: start: 20090101
  2. SUMATRIPTAN [Suspect]
     Indication: MIGRAINE
     Route: 048
     Dates: start: 20120228, end: 20120228
  3. ALBUTEROL [Concomitant]
     Indication: ASTHMA
     Dosage: 2 PUFFS AS NECESSARY
     Route: 055
     Dates: start: 20090101

REACTIONS (5)
  - CHEST PAIN [None]
  - HYPERSENSITIVITY [None]
  - THROAT IRRITATION [None]
  - PARAESTHESIA ORAL [None]
  - SWOLLEN TONGUE [None]
